FAERS Safety Report 6301560-6 (Version None)
Quarter: 2009Q3

REPORT INFORMATION
  Report Type: 
  Country: None (occurrence: None)
  Receive Date: 20090807
  Receipt Date: 20090730
  Transmission Date: 20100115
  Serious: Yes (Other)
  Sender: FDA-Public Use
  Company Number: TR-AVENTIS-200917886GDDC

PATIENT
  Age: 29 Year
  Sex: Female

DRUGS (3)
  1. CLOMIPHENE CITRATE [Suspect]
     Indication: OVULATION INDUCTION
     Dosage: DOSE: 100 MG/D
     Dates: start: 20080301
  2. CLOMIPHENE CITRATE [Suspect]
     Dates: start: 20081001
  3. METFORMIN [Concomitant]

REACTIONS (1)
  - HYPERTRIGLYCERIDAEMIA [None]
